FAERS Safety Report 4842453-0 (Version None)
Quarter: 2005Q4

REPORT INFORMATION
  Report Type: 
  Country: None (occurrence: None)
  Receive Date: 20051129
  Receipt Date: 20051108
  Transmission Date: 20060501
  Serious: Yes (Hospitalization)
  Sender: FDA-Public Use
  Company Number: US200511000369

PATIENT
  Age: 80 Year
  Sex: Female

DRUGS (2)
  1. FORTEO [Suspect]
     Indication: OSTEOPOROSIS
     Dates: start: 20050401
  2. FORTEO PEN (FORTEO PEN) [Concomitant]

REACTIONS (5)
  - FALL [None]
  - HEAD INJURY [None]
  - HEADACHE [None]
  - INJURY [None]
  - JOINT INJURY [None]
